FAERS Safety Report 7677662-9 (Version None)
Quarter: 2011Q3

REPORT INFORMATION
  Report Type: 
  Country: None (occurrence: None)
  Receive Date: 20110811
  Receipt Date: 20110802
  Transmission Date: 20111222
  Serious: Yes (Hospitalization)
  Sender: FDA-Public Use
  Company Number: PHHY2011CA68504

PATIENT
  Sex: Male

DRUGS (5)
  1. EVEROLIMUS [Concomitant]
  2. METHADONE HYDROCHLORIDE [Concomitant]
  3. GABAPENTIN [Concomitant]
  4. HYDROMORPHONE HCL [Concomitant]
  5. SANDOSTATIN LAR [Suspect]
     Indication: NEUROENDOCRINE TUMOUR
     Dosage: 20 MG, QMO
     Route: 030
     Dates: start: 20110526

REACTIONS (2)
  - PNEUMOTHORAX [None]
  - DYSPNOEA [None]
